FAERS Safety Report 9272013 (Version 2)
Quarter: 2013Q2

REPORT INFORMATION
  Report Type: Spontaneous
  Country: US (occurrence: US)
  Receive Date: 20130506
  Receipt Date: 20130625
  Transmission Date: 20140414
  Serious: No
  Sender: FDA-Public Use
  Company Number: US-B.I. PHARMACEUTICALS,INC./RIDGEFIELD-2013-BI-12236BP

PATIENT
  Age: 66 Year
  Sex: Male
  Weight: 93 kg

DRUGS (10)
  1. SPIRIVA [Suspect]
     Indication: CHRONIC OBSTRUCTIVE PULMONARY DISEASE
     Dosage: 18 MCG
     Route: 055
     Dates: start: 20130228
  2. ASA [Concomitant]
  3. LISINOPRIL [Concomitant]
  4. BUMEX [Concomitant]
  5. METFORMIN [Concomitant]
  6. OMEPRAZOLE [Concomitant]
  7. GLIMEPIRIDE [Concomitant]
  8. PRAVACHOL [Concomitant]
  9. JANUVIA [Concomitant]
  10. GABAPENTIN [Concomitant]

REACTIONS (7)
  - Abdominal distension [Not Recovered/Not Resolved]
  - Abdominal rigidity [Not Recovered/Not Resolved]
  - Tremor [Not Recovered/Not Resolved]
  - Hypoaesthesia [Not Recovered/Not Resolved]
  - Circulatory collapse [Recovered/Resolved]
  - Gait disturbance [Not Recovered/Not Resolved]
  - Back pain [Not Recovered/Not Resolved]
